FAERS Safety Report 4830115-5 (Version None)
Quarter: 2005Q4

REPORT INFORMATION
  Report Type: 
  Country: None (occurrence: None)
  Receive Date: 20051114
  Receipt Date: 20051026
  Transmission Date: 20060501
  Serious: Yes (Hospitalization)
  Sender: FDA-Public Use
  Company Number: DE-SHR-03-006512

PATIENT
  Age: 44 Year
  Sex: Male
  Weight: 91 kg

DRUGS (2)
  1. BETAFERON(INTERFERONA BETA - 1B) INJECTION [Suspect]
     Indication: MULTIPLE SCLEROSIS
     Dosage: 250 UG, EVERY 2D, SUBCUTANEOUS
     Route: 058
     Dates: start: 19990101
  2. VITAMIN A [Concomitant]

REACTIONS (9)
  - ABASIA [None]
  - FEBRILE INFECTION [None]
  - INJECTION SITE ABSCESS [None]
  - MULTIPLE SCLEROSIS RELAPSE [None]
  - PAIN [None]
  - PARALYSIS [None]
  - PYREXIA [None]
  - SPEECH DISORDER [None]
  - WHITE BLOOD CELL COUNT DECREASED [None]
